FAERS Safety Report 6410813-2 (Version None)
Quarter: 2009Q4

REPORT INFORMATION
  Report Type: 
  Country: None (occurrence: None)
  Receive Date: 20091020
  Receipt Date: 20091020
  Transmission Date: 20100525
  Serious: Yes (Other)
  Sender: FDA-Public Use
  Company Number: None

PATIENT
  Age: 55 Year
  Sex: Female
  Weight: 69.8539 kg

DRUGS (2)
  1. LEVETIRACETAM [Suspect]
     Dosage: 375 MG 1X DAILY PO
     Route: 048
     Dates: start: 20090101, end: 20091020
  2. LEVETIRACETAM [Suspect]
     Dosage: 750 MG 2X DAILY PO
     Route: 048
     Dates: start: 20090101, end: 20091020

REACTIONS (2)
  - CONVULSION [None]
  - PRODUCT SUBSTITUTION ISSUE [None]
